FAERS Safety Report 18430879 (Version 1)
Quarter: 2020Q4

REPORT INFORMATION
  Report Type: Spontaneous
  Country: US (occurrence: US)
  Receive Date: 20201027
  Receipt Date: 20201027
  Transmission Date: 20210114
  Serious: No
  Sender: FDA-Public Use
  Company Number: US-AMAG PHARMACEUTICALS, INC.-AMAG202003640

PATIENT
  Age: 35 Year
  Sex: Female

DRUGS (1)
  1. MAKENA [Suspect]
     Active Substance: HYDROXYPROGESTERONE CAPROATE
     Indication: PRODUCT USED FOR UNKNOWN INDICATION
     Dosage: THE PATIENT RECEIVED A TOTAL OF 4 DOSES.
     Route: 058

REACTIONS (7)
  - Injection site pruritus [Unknown]
  - Injection site erythema [Unknown]
  - Injection site induration [Unknown]
  - Injection site discolouration [Unknown]
  - Product administered at inappropriate site [Unknown]
  - Injection site swelling [Unknown]
  - Injection site urticaria [Unknown]
